FAERS Safety Report 10245006 (Version 1)
Quarter: 2014Q2

REPORT INFORMATION
  Report Type: Spontaneous
  Country: US (occurrence: US)
  Receive Date: 20140618
  Receipt Date: 20140618
  Transmission Date: 20141212
  Serious: No
  Sender: FDA-Public Use
  Company Number: US-GALDERMA-US14001063

PATIENT
  Age: 72 Year
  Sex: Female

DRUGS (15)
  1. MIRVASO (BRIMONIDINE) TOPICAL GEL, 0.33% [Suspect]
     Indication: ROSACEA
     Dosage: 0.33%
     Route: 061
     Dates: start: 20140301, end: 20140301
  2. EUCERIN REDNESS RELIEF CLEANSER [Concomitant]
     Indication: THERAPEUTIC SKIN CARE TOPICAL
     Route: 061
     Dates: start: 2010
  3. EUCERIN REDNESS RELIEF CLEANSER [Concomitant]
     Indication: ROSACEA
  4. CERAVE MOISTURIZING CREAM [Concomitant]
     Indication: DRY SKIN PROPHYLAXIS
     Route: 061
     Dates: start: 2012
  5. VANICREAM SUNSCREEN SPF 50 OR 60 [Concomitant]
     Indication: PROPHYLAXIS AGAINST SOLAR RADIATION
     Route: 061
  6. FEXOFENADINE [Concomitant]
     Indication: SEASONAL ALLERGY
     Route: 048
     Dates: start: 2009
  7. OMEPRAZOLE [Concomitant]
     Indication: GASTROOESOPHAGEAL REFLUX DISEASE
     Dosage: 40 MG
     Route: 048
     Dates: start: 20140108
  8. VALACYCLOVIR [Concomitant]
     Indication: HERPES VIRUS INFECTION
     Dosage: 500 MG
     Route: 048
     Dates: start: 2005
  9. SYNTHROID [Concomitant]
     Indication: THYROIDECTOMY
     Dosage: 0.112 MG
     Route: 048
  10. LETROZOLE [Concomitant]
     Indication: BREAST CANCER
     Dosage: 2.5 MG
     Route: 048
     Dates: start: 2011
  11. COLCRYS (COLCHICINE) [Concomitant]
     Indication: OSTEOARTHRITIS
     Dosage: 0.6 MG
     Route: 048
     Dates: start: 2013
  12. VITAMIN D [Concomitant]
     Dosage: 50,000 IU
     Route: 048
     Dates: start: 2006
  13. PROBIOTIC FOR MATURE ADULTS [Concomitant]
     Indication: DYSPEPSIA
     Dates: start: 2013
  14. WAL-MUCIL FIBER [Concomitant]
     Indication: DYSPEPSIA
     Dates: start: 201401
  15. CERAVE MOISTURIZING LOTION [Concomitant]
     Indication: ROSACEA
     Route: 061
     Dates: start: 2013

REACTIONS (4)
  - Pruritus [Recovered/Resolved]
  - Skin burning sensation [Recovered/Resolved]
  - Dermatitis [Recovered/Resolved]
  - Erythema [Recovered/Resolved]
